FAERS Safety Report 11370310 (Version 1)
Quarter: 2015Q3

REPORT INFORMATION
  Report Type: Spontaneous
  Country: CN (occurrence: CN)
  Receive Date: 20150812
  Receipt Date: 20150812
  Transmission Date: 20151125
  Serious: Yes (Other)
  Sender: FDA-Public Use
  Company Number: CN-JNJFOC-20150805831

PATIENT
  Age: 6 Year
  Sex: Male

DRUGS (6)
  1. SPORANOX [Suspect]
     Active Substance: ITRACONAZOLE\SODIUM CHLORIDE
     Indication: HEPATIC INFECTION FUNGAL
     Route: 048
     Dates: start: 2013
  2. SPORANOX [Suspect]
     Active Substance: ITRACONAZOLE\SODIUM CHLORIDE
     Indication: SPLENIC INFECTION FUNGAL
     Route: 048
  3. SPORANOX [Suspect]
     Active Substance: ITRACONAZOLE\SODIUM CHLORIDE
     Indication: SPLENIC INFECTION FUNGAL
     Route: 048
     Dates: start: 2013
  4. SPORANOX [Suspect]
     Active Substance: ITRACONAZOLE\SODIUM CHLORIDE
     Indication: HEPATIC INFECTION FUNGAL
     Route: 048
  5. SPORANOX [Suspect]
     Active Substance: ITRACONAZOLE\SODIUM CHLORIDE
     Indication: HEPATIC INFECTION FUNGAL
     Route: 048
     Dates: end: 201503
  6. SPORANOX [Suspect]
     Active Substance: ITRACONAZOLE\SODIUM CHLORIDE
     Indication: SPLENIC INFECTION FUNGAL
     Route: 048
     Dates: end: 201503

REACTIONS (1)
  - Epilepsy [Not Recovered/Not Resolved]

NARRATIVE: CASE EVENT DATE: 201407
